FAERS Safety Report 4318415-9 (Version None)
Quarter: 2004Q1

REPORT INFORMATION
  Report Type: 
  Country: None (occurrence: None)
  Receive Date: 20040315
  Receipt Date: 20040302
  Transmission Date: 20041129
  Serious: Yes (Death)
  Sender: FDA-Public Use
  Company Number: JP-JNJFOC-20040204276

PATIENT
  Age: 81 Year
  Sex: Female

DRUGS (13)
  1. FENTANYL [Suspect]
     Indication: CANCER PAIN
     Dosage: 1.25 MG, 1 IN 3 DAY, TRANSDERMAL
     Route: 062
     Dates: start: 20040211, end: 20040214
  2. TRIAZOLAM [Suspect]
     Indication: INSOMNIA
     Dosage: 0.125 MG, 1 IN 1 DAY, ORAL
     Route: 048
     Dates: start: 20031203, end: 20040213
  3. RANITIDINE HYDROCHLORIDE [Concomitant]
  4. SULPIRIDE (SULPIRIDE) [Concomitant]
  5. BROTIZOLAM (BROTIZOLAM) [Suspect]
     Indication: INSOMNIA
     Dosage: 0.125 MG, 1 IN 1 DAY, ORAL
     Route: 048
     Dates: start: 20040121, end: 20040213
  6. OXYBUTYNIN HYDROCHLORIDE (OXYBUTYNIN HYDROCHLORIDE) [Concomitant]
  7. MOSAPRIDE CITRATE (MOSAPRIDE CITRATE) [Concomitant]
  8. LOXOPROFEN SODIUM (LOXOPROFEN SODIUM) [Concomitant]
  9. SODIUM PICOSULFATE (SODIUM PICOSULFATE) [Concomitant]
  10. MAGNESIUM HYDROXIDE (MAGNESIUM HYDROXIDE) [Concomitant]
  11. BETAMETHASONE [Concomitant]
  12. METOCLOPRAMIDE [Concomitant]
  13. PROCHLORPERAZINDE (PROCLORPERAZINE) [Concomitant]

REACTIONS (17)
  - ACUTE RESPIRATORY FAILURE [None]
  - ASPIRATION [None]
  - BACK INJURY [None]
  - BLOOD LACTATE DEHYDROGENASE INCREASED [None]
  - CEREBRAL HAEMORRHAGE [None]
  - DYSPNOEA [None]
  - FALL [None]
  - HEAD INJURY [None]
  - METASTASIS [None]
  - NAUSEA [None]
  - PO2 DECREASED [None]
  - PULMONARY OEDEMA [None]
  - RESPIRATORY DISORDER [None]
  - RESPIRATORY FAILURE [None]
  - VOMITING [None]
  - WHEEZING [None]
  - WHITE BLOOD CELL COUNT INCREASED [None]
